FAERS Safety Report 15565978 (Version 1)
Quarter: 2018Q4

REPORT INFORMATION
  Report Type: Spontaneous
  Country: US (occurrence: US)
  Receive Date: 20181030
  Receipt Date: 20181030
  Transmission Date: 20190205
  Serious: No
  Sender: FDA-Public Use
  Company Number: US-BEH-2018096105

PATIENT
  Sex: Female

DRUGS (1)
  1. HUMATE-P [Suspect]
     Active Substance: HUMAN COAGULATION FACTOR VIII/VON WILLEBRAND FACTOR COMPLEX
     Indication: VON WILLEBRAND^S DISEASE
     Dosage: 4000 RCOF, DAILY UP TO 3 DOSES AS DIRECTED PRN BLEEDS
     Route: 042
     Dates: start: 20140121

REACTIONS (2)
  - Contusion [Unknown]
  - Blood urine present [Unknown]
